FAERS Safety Report 9805882 (Version 1)
Quarter: 2014Q1

REPORT INFORMATION
  Report Type: Spontaneous
  Country: US (occurrence: US)
  Receive Date: 20140109
  Receipt Date: 20140109
  Transmission Date: 20141002
  Serious: Yes (Death, Other)
  Sender: FDA-Public Use
  Company Number: US-UCBSA-108321

PATIENT
  Age: 55 Year
  Sex: Male

DRUGS (6)
  1. ALPRAZOLAM [Suspect]
  2. VILAZODONE [Suspect]
     Dosage: EXTENDED RELEASE
  3. SALICYLATE [Suspect]
     Dosage: EXTENDED RELEASE
  4. ESCITALOPRAM [Suspect]
  5. DULOXETINE [Suspect]
  6. CLONAZEPAM [Concomitant]

REACTIONS (3)
  - Cardio-respiratory arrest [Fatal]
  - Completed suicide [Fatal]
  - Hyperthermia [Unknown]
